FAERS Safety Report 7018894-2 (Version None)
Quarter: 2010Q3

REPORT INFORMATION
  Report Type: 
  Country: None (occurrence: None)
  Receive Date: 20100928
  Receipt Date: 20100921
  Transmission Date: 20110219
  Serious: Yes (Other)
  Sender: FDA-Public Use
  Company Number: GXKR2010DE10114

PATIENT
  Age: 7 Year
  Sex: Female

DRUGS (13)
  1. METHYLPREDNISOLONE 4MG TAB [Suspect]
     Indication: JUVENILE ARTHRITIS
     Dosage: PULSES
     Route: 065
  2. PREDNISONE [Suspect]
     Indication: JUVENILE ARTHRITIS
     Dosage: 40 MG/DAY
     Route: 048
  3. NSAID'S [Concomitant]
     Indication: JUVENILE ARTHRITIS
  4. ETANERCEPT [Concomitant]
     Indication: JUVENILE ARTHRITIS
  5. ANAKINRA [Concomitant]
     Indication: JUVENILE ARTHRITIS
  6. CYCLOSPORINE [Concomitant]
     Indication: JUVENILE ARTHRITIS
  7. ETOPOSIDE [Concomitant]
     Indication: JUVENILE ARTHRITIS
  8. METHOTREXATE [Concomitant]
     Dosage: 10 MG/WEEK
     Route: 048
  9. FOLIC ACID [Concomitant]
     Dosage: 5 MG
  10. DOCITON [Concomitant]
  11. COTRIM [Concomitant]
  12. ENALAPRIL MALEATE [Concomitant]
  13. OMEPRAZOLE [Concomitant]

REACTIONS (2)
  - BACK PAIN [None]
  - EPIDURAL LIPOMATOSIS [None]
